FAERS Safety Report 8611711-6 (Version None)
Quarter: 2012Q3

REPORT INFORMATION
  Report Type: 
  Country: None (occurrence: None)
  Receive Date: 20120822
  Receipt Date: 20120814
  Transmission Date: 20120928
  Serious: Yes (Hospitalization)
  Sender: FDA-Public Use
  Company Number: CA-ROCHE-1102098

PATIENT
  Sex: Female
  Weight: 95.3 kg

DRUGS (7)
  1. PREDNISONE TAB [Concomitant]
  2. ACTONEL [Concomitant]
  3. FOLIC ACID [Concomitant]
  4. CRESTOR [Concomitant]
  5. OXYCET [Concomitant]
  6. OLMESARTAN MEDOXOMIL [Concomitant]
  7. ACTEMRA [Suspect]
     Indication: RHEUMATOID ARTHRITIS
     Route: 042
     Dates: start: 20120607, end: 20120705

REACTIONS (12)
  - ERYTHEMA [None]
  - ADVERSE DRUG REACTION [None]
  - LOSS OF CONSCIOUSNESS [None]
  - FATIGUE [None]
  - SWELLING FACE [None]
  - HEADACHE [None]
  - FEELING HOT [None]
  - PRURITUS [None]
  - EYE MOVEMENT DISORDER [None]
  - CARDIAC DISORDER [None]
  - DYSPHAGIA [None]
  - URTICARIA [None]
